FAERS Safety Report 18689425 (Version 1)
Quarter: 2020Q4

REPORT INFORMATION
  Report Type: Spontaneous
  Country: US (occurrence: US)
  Receive Date: 20201231
  Receipt Date: 20201231
  Transmission Date: 20210114
  Serious: No
  Sender: FDA-Public Use
  Company Number: US-JNJFOC-20201253183

PATIENT
  Sex: Male

DRUGS (1)
  1. NIZORAL [Suspect]
     Active Substance: KETOCONAZOLE
     Indication: PRODUCT USED FOR UNKNOWN INDICATION
     Dosage: APPLIED TO FACE AND SCALP
     Route: 061

REACTIONS (5)
  - Product administered at inappropriate site [Unknown]
  - Application site erythema [Unknown]
  - Application site swelling [Unknown]
  - Application site pruritus [Unknown]
  - Intentional product misuse [Unknown]
